FAERS Safety Report 25964032 (Version 3)
Quarter: 2025Q4

REPORT INFORMATION
  Report Type: Spontaneous
  Country: EU (occurrence: EU)
  Receive Date: 20251027
  Receipt Date: 20251114
  Transmission Date: 20260117
  Serious: Yes (Hospitalization, Other)
  Sender: FERRING
  Company Number: None

PATIENT

DRUGS (2)
  1. PICOPREP [Suspect]
     Active Substance: ANHYDROUS CITRIC ACID\MAGNESIUM OXIDE\SODIUM PICOSULFATE
     Indication: Bowel preparation
     Dosage: UNK
     Route: 065
     Dates: start: 20250917, end: 20250917
  2. PROGESTERONE [Concomitant]
     Active Substance: PROGESTERONE
     Indication: Oral contraception
     Dosage: UNK
     Route: 048
     Dates: start: 2022

REACTIONS (11)
  - Circulatory collapse [Recovered/Resolved]
  - Bone contusion [Recovering/Resolving]
  - Hyperhidrosis [Recovered/Resolved]
  - Jaw fracture [Recovered/Resolved with Sequelae]
  - Chills [Recovered/Resolved]
  - Mouth haemorrhage [Recovered/Resolved]
  - Tooth fracture [Recovered/Resolved with Sequelae]
  - Pain [Not Recovered/Not Resolved]
  - Pulpitis dental [Recovered/Resolved with Sequelae]
  - Syncope [Recovered/Resolved]
  - Abdominal pain [Recovered/Resolved]

NARRATIVE: CASE EVENT DATE: 20250101
